FAERS Safety Report 21049905 (Version 1)
Quarter: 2022Q3

REPORT INFORMATION
  Report Type: Report from Study
  Country: PL (occurrence: PL)
  Receive Date: 20220706
  Receipt Date: 20220706
  Transmission Date: 20221027
  Serious: Yes (Death)
  Sender: FDA-Public Use
  Company Number: PL-Merck Healthcare KGaA-9289559

PATIENT
  Age: 66 Year
  Sex: Male

DRUGS (5)
  1. FLUOROURACIL [Suspect]
     Active Substance: FLUOROURACIL
     Indication: Colorectal cancer metastatic
     Dosage: UNK UNK, Q2W (740 (UNSPECIFIED UNIT))
     Route: 065
     Dates: start: 20190722, end: 20200224
  2. CETUXIMAB [Suspect]
     Active Substance: CETUXIMAB
     Indication: Colorectal cancer metastatic
     Dosage: 926 MILLIGRAM/SQ. METER
     Route: 065
     Dates: end: 20200224
  3. CETUXIMAB [Suspect]
     Active Substance: CETUXIMAB
     Dosage: 925 MILLIGRAM/SQ. METER
     Route: 065
     Dates: start: 20190722
  4. LEUCOVORIN [Suspect]
     Active Substance: LEUCOVORIN
     Indication: Colorectal cancer metastatic
     Dosage: UNK, Q2W (370 (UNSPECIFIED UNIT)  )
     Route: 065
     Dates: start: 20190722, end: 20200224
  5. IRINOTECAN [Suspect]
     Active Substance: IRINOTECAN
     Indication: Colorectal cancer metastatic
     Dosage: UNK, Q2W (333 (UNSPECIFIED UNIT)  )
     Route: 065
     Dates: start: 20190722, end: 20200224

REACTIONS (2)
  - Disease progression [Fatal]
  - Off label use [Unknown]

NARRATIVE: CASE EVENT DATE: 20200325
